FAERS Safety Report 8431567-4 (Version None)
Quarter: 2012Q2

REPORT INFORMATION
  Report Type: 
  Country: None (occurrence: None)
  Receive Date: 20120607
  Receipt Date: 20120607
  Transmission Date: 20120825
  Serious: Yes (Other)
  Sender: FDA-Public Use
  Company Number: None

PATIENT
  Age: 51 Year
  Sex: Female
  Weight: 81.6475 kg

DRUGS (1)
  1. CIPROFLOXACIN 500MG DR. REDDY'S LABORATORY [Suspect]
     Dosage: 500 MG BID PO
     Route: 048
     Dates: start: 20120203, end: 20120205

REACTIONS (1)
  - VASCULITIS [None]
